FAERS Safety Report 5330785-1 (Version None)
Quarter: 2007Q2

REPORT INFORMATION
  Report Type: 
  Country: None (occurrence: None)
  Receive Date: 20070522
  Receipt Date: 20070509
  Transmission Date: 20071010
  Serious: Yes (Hospitalization)
  Sender: FDA-Public Use
  Company Number: US-JNJFOC-20070504902

PATIENT
  Sex: Male
  Weight: 83.92 kg

DRUGS (7)
  1. IBUPROFEN [Suspect]
  2. IBUPROFEN [Suspect]
     Indication: PAIN
  3. AMOXICILLIN [Concomitant]
  4. UNSPECIFIED ANTIBIOTICS [Concomitant]
  5. PROTONIX [Concomitant]
  6. NORVASC [Concomitant]
     Indication: HYPERTENSION
  7. LISINOPRIL [Concomitant]
     Indication: HYPERTENSION

REACTIONS (2)
  - BACTERIAL INFECTION [None]
  - GASTRIC HAEMORRHAGE [None]
